FAERS Safety Report 13210341 (Version 2)
Quarter: 2017Q1

REPORT INFORMATION
  Report Type: Spontaneous
  Country: PT (occurrence: PT)
  Receive Date: 20170210
  Receipt Date: 20170223
  Transmission Date: 20170428
  Serious: Yes (Other)
  Sender: FDA-Public Use
  Company Number: PT-VIIV HEALTHCARE LIMITED-PT2017GSK017886

PATIENT
  Age: 34 Year
  Sex: Male

DRUGS (2)
  1. KIVEXA [Suspect]
     Active Substance: ABACAVIR SULFATE\LAMIVUDINE
     Indication: HIV INFECTION
     Dosage: UNK
     Dates: start: 20170126
  2. DOLUTEGRAVIR [Suspect]
     Active Substance: DOLUTEGRAVIR
     Indication: HIV INFECTION
     Dosage: UNK
     Dates: start: 20170126, end: 20170203

REACTIONS (8)
  - Hepatitis C [Unknown]
  - Neurotoxicity [Recovering/Resolving]
  - Hallucination [Unknown]
  - Insomnia [Recovering/Resolving]
  - Cell death [Unknown]
  - Memory impairment [Unknown]
  - Sleep disorder [Recovering/Resolving]
  - Hallucinations, mixed [Recovering/Resolving]

NARRATIVE: CASE EVENT DATE: 20170127
